FAERS Safety Report 8876540 (Version 1)
Quarter: 2012Q4

REPORT INFORMATION
  Report Type: 
  Country: DK (occurrence: DK)
  Receive Date: 20121030
  Receipt Date: 20121030
  Transmission Date: 20130627
  Serious: Yes (Other)
  Sender: FDA-Public Use
  Company Number: DK-ROCHE-1149120

PATIENT
  Sex: Female

DRUGS (4)
  1. TRASTUZUMAB [Suspect]
     Indication: BREAST CANCER
     Dosage: for 8 cycles
     Route: 065
  2. DOXORUBICIN [Suspect]
     Indication: BREAST CANCER
     Route: 065
  3. DOXORUBICIN [Suspect]
     Route: 065
  4. CYCLOPHOSPHAMIDE [Suspect]
     Indication: BREAST CANCER
     Route: 065

REACTIONS (6)
  - Palmar-plantar erythrodysaesthesia syndrome [Unknown]
  - Neurotoxicity [Unknown]
  - Pain [Unknown]
  - Fatigue [Unknown]
  - Febrile neutropenia [Unknown]
  - Mucosal inflammation [Unknown]
